FAERS Safety Report 9344301 (Version 1)
Quarter: 2013Q2

REPORT INFORMATION
  Report Type: Spontaneous
  Country: JP (occurrence: JP)
  Receive Date: 20130612
  Receipt Date: 20130612
  Transmission Date: 20140414
  Serious: Yes (Hospitalization)
  Sender: FDA-Public Use
  Company Number: JP-ASTRAZENECA-2013SE40810

PATIENT
  Age: 88 Year
  Sex: Female

DRUGS (2)
  1. CRESTOR [Suspect]
     Route: 048
     Dates: start: 201303
  2. PNEUMOCOCCUS [Suspect]
     Route: 065

REACTIONS (2)
  - Pneumonia [Unknown]
  - Blood creatine phosphokinase increased [Unknown]
